FAERS Safety Report 11148930 (Version 1)
Quarter: 2015Q2

REPORT INFORMATION
  Report Type: Spontaneous
  Country: GB (occurrence: GB)
  Receive Date: 20150529
  Receipt Date: 20150529
  Transmission Date: 20150821
  Serious: Yes (Hospitalization)
  Sender: FDA-Public Use
  Company Number: GB-HOSPIRA-2880702

PATIENT
  Age: 52 Year
  Sex: Male
  Weight: 71 kg

DRUGS (4)
  1. CARBOPLATIN. [Suspect]
     Active Substance: CARBOPLATIN
     Indication: GASTRIC CANCER
     Dosage: DATE OF LAST DOSE PRIOR TO SAE: 22 FEB 2013
     Route: 042
     Dates: start: 20120830
  2. AVASTIN [Suspect]
     Active Substance: BEVACIZUMAB
     Indication: GASTRIC CANCER
     Dosage: DATE OF LAST DOSE PRIOR TO SAE: 22 FEB 2013
     Route: 042
     Dates: start: 20120830
  3. EPIRUBICIN HYDROCHLORIDE. [Suspect]
     Active Substance: EPIRUBICIN HYDROCHLORIDE
     Indication: GASTRIC CANCER
     Dosage: DATE OF LAST DOSE PRIOR TO SAE: 22 FEB 2013
     Route: 042
     Dates: start: 20120830
  4. XELODA [Suspect]
     Active Substance: CAPECITABINE
     Indication: GASTRIC CANCER
     Dosage: DATE OF LAST DOSE PRIOR TO SAE: 22 FEB 2013
     Route: 048
     Dates: start: 20120830

REACTIONS (2)
  - Constipation [Not Recovered/Not Resolved]
  - Abdominal pain [Not Recovered/Not Resolved]

NARRATIVE: CASE EVENT DATE: 20130301
